FAERS Safety Report 7025771-X (Version None)
Quarter: 2010Q4

REPORT INFORMATION
  Report Type: 
  Country: None (occurrence: None)
  Receive Date: 20101004
  Receipt Date: 20100924
  Transmission Date: 20110411
  Serious: Yes (Hospitalization)
  Sender: FDA-Public Use
  Company Number: US-BIOGENIDEC-2010BI031382

PATIENT
  Age: 45 Year
  Sex: Female

DRUGS (2)
  1. AVONEX [Suspect]
     Indication: MULTIPLE SCLEROSIS
     Route: 030
     Dates: start: 20010207, end: 20051101
  2. AVONEX [Suspect]
     Route: 030
     Dates: start: 20091118

REACTIONS (3)
  - CEREBROVASCULAR ACCIDENT [None]
  - MULTIPLE SCLEROSIS RELAPSE [None]
  - VIITH NERVE PARALYSIS [None]
